FAERS Safety Report 5387067-1 (Version None)
Quarter: 2007Q3

REPORT INFORMATION
  Report Type: 
  Country: None (occurrence: None)
  Receive Date: 20070710
  Receipt Date: 20070623
  Transmission Date: 20080115
  Serious: Yes (Hospitalization)
  Sender: FDA-Public Use
  Company Number: CIO07009935

PATIENT
  Age: 75 Year
  Sex: Female
  Weight: 81.6 kg

DRUGS (2)
  1. METAMUCIL PLUS CALCIUM CAPSULES (PSYLLIUM HYDROPHILIC MUCILLOID 3 G) C [Suspect]
     Dosage: 5 CAPSUL, 1 ONLY FOR 1 DAY, ORAL
     Route: 048
     Dates: start: 20070622, end: 20070622
  2. ZETIA [Concomitant]

REACTIONS (5)
  - CARDIO-RESPIRATORY ARREST [None]
  - FOREIGN BODY TRAUMA [None]
  - PROCEDURAL COMPLICATION [None]
  - SENSATION OF FOREIGN BODY [None]
  - VOMITING [None]
